FAERS Safety Report 17862288 (Version 1)
Quarter: 2020Q2

REPORT INFORMATION
  Report Type: Other
  Country: US (occurrence: US)
  Receive Date: 20200604
  Receipt Date: 20200604
  Transmission Date: 20200714
  Serious: Yes (Death, Hospitalization)
  Sender: FDA-Public Use
  Company Number: US-GENUS_LIFESCIENCES-USA-POI0580202000206

PATIENT
  Age: 51 Year
  Sex: Female

DRUGS (1)
  1. GOPRELTO [Suspect]
     Active Substance: COCAINE HYDROCHLORIDE
     Indication: PRODUCT USED FOR UNKNOWN INDICATION
     Route: 045
     Dates: start: 201502, end: 201502

REACTIONS (1)
  - Locked-in syndrome [Fatal]

NARRATIVE: CASE EVENT DATE: 201502
